FAERS Safety Report 10969989 (Version 4)
Quarter: 2015Q2

REPORT INFORMATION
  Report Type: Report from Study
  Country: US (occurrence: None)
  Receive Date: 20150327
  Receipt Date: 20150529
  Transmission Date: 20150821
  Serious: Yes (Other)
  Sender: FDA-Public Use
  Company Number: ADR-2015-00579

PATIENT
  Age: 50 Year
  Sex: Male

DRUGS (4)
  1. FENTANYL. [Suspect]
     Active Substance: FENTANYL
     Indication: PAIN
     Dosage: 125.01 MCG/DAY
  2. CLONIDINE. [Suspect]
     Active Substance: CLONIDINE
     Dosage: 200.02 MCG/DAY (SEE B5 TWO DIFFERENT STRENGTH)
  3. COMPOUNDED BACLOFEN [Suspect]
     Active Substance: BACLOFEN
     Indication: PAIN
     Dosage: 200.02 MCG/DAY?
  4. BUPIVACAINE [Suspect]
     Active Substance: BUPIVACAINE
     Dosage: 15.002 MG/DAY

REACTIONS (12)
  - Asthenia [None]
  - Dizziness [None]
  - Chills [None]
  - Hypoaesthesia [None]
  - Intervertebral disc protrusion [None]
  - Infusion site mass [None]
  - Confusional state [None]
  - Implant site pain [None]
  - Catheter site pain [None]
  - Balance disorder [None]
  - Nuclear magnetic resonance imaging abnormal [None]
  - Anxiety [None]

NARRATIVE: CASE EVENT DATE: 20140826
